FAERS Safety Report 7543666-X (Version None)
Quarter: 2011Q2

REPORT INFORMATION
  Report Type: 
  Country: None (occurrence: None)
  Receive Date: 20110613
  Receipt Date: 20030610
  Transmission Date: 20111010
  Serious: Yes (Hospitalization, Other)
  Sender: FDA-Public Use
  Company Number: PHFR2003GB01404

PATIENT
  Sex: Male

DRUGS (7)
  1. ALBUTEROL [Concomitant]
     Dosage: 100MG/PUFF 2 PUFFS QDS
     Dates: start: 20030604
  2. FUROSEMIDE [Concomitant]
     Route: 048
     Dates: start: 20030709
  3. RAMIPRIL [Concomitant]
     Dosage: 25 MG, QD
     Route: 048
     Dates: start: 20030709
  4. ASPIRIN [Concomitant]
     Dosage: 75 MG, QD
     Route: 048
     Dates: start: 20030709
  5. BECLOMETHASONE DIPROPIONATE [Concomitant]
     Dosage: 100MG/PUFF 2 PUFFS BD
     Dates: start: 20030604
  6. IPRATROPIUM BROMIDE [Concomitant]
     Dosage: 20MG/PUFF 2 PUFFS QDS
  7. CLOZAPINE [Suspect]
     Indication: SCHIZOPHRENIA
     Dosage: 375MG/DAY
     Route: 048
     Dates: start: 20020823

REACTIONS (6)
  - COUGH [None]
  - CHRONIC OBSTRUCTIVE PULMONARY DISEASE [None]
  - DYSPNOEA [None]
  - PLEURAL EFFUSION [None]
  - LEFT VENTRICULAR FAILURE [None]
  - LOWER RESPIRATORY TRACT INFECTION [None]
